FAERS Safety Report 23274351 (Version 1)
Quarter: 2023Q4

REPORT INFORMATION
  Report Type: Spontaneous
  Country: US (occurrence: US)
  Receive Date: 20231208
  Receipt Date: 20231208
  Transmission Date: 20240109
  Serious: No
  Sender: FDA-Public Use
  Company Number: US-AUROBINDO-AUR-APL-2023-009845

PATIENT
  Sex: Female

DRUGS (2)
  1. PROGESTERONE [Suspect]
     Active Substance: PROGESTERONE
     Indication: Menopausal symptoms
     Dosage: UNK UNK, DAILY
     Route: 048
     Dates: start: 202111, end: 20230314
  2. PROGESTERONE [Suspect]
     Active Substance: PROGESTERONE
     Dosage: 100 MILLIGRAM
     Route: 065

REACTIONS (12)
  - Menopausal symptoms [Not Recovered/Not Resolved]
  - Hot flush [Not Recovered/Not Resolved]
  - Memory impairment [Not Recovered/Not Resolved]
  - Brain fog [Not Recovered/Not Resolved]
  - Irritability [Not Recovered/Not Resolved]
  - Abdominal discomfort [Not Recovered/Not Resolved]
  - Diarrhoea [Not Recovered/Not Resolved]
  - Headache [Not Recovered/Not Resolved]
  - Dizziness [Not Recovered/Not Resolved]
  - Product odour abnormal [Not Recovered/Not Resolved]
  - Product quality issue [Not Recovered/Not Resolved]
  - Drug ineffective [Unknown]

NARRATIVE: CASE EVENT DATE: 20230211
